FAERS Safety Report 5405156-X (Version None)
Quarter: 2007Q3

REPORT INFORMATION
  Report Type: 
  Country: None (occurrence: None)
  Receive Date: 20070803
  Receipt Date: 20070726
  Transmission Date: 20080115
  Serious: Yes (Hospitalization)
  Sender: FDA-Public Use
  Company Number: JP-ASTRAZENECA-2007SE04253

PATIENT
  Age: 81 Year
  Sex: Female

DRUGS (4)
  1. CANDESARTAN CILEXETIL [Suspect]
     Indication: HYPERTENSION
     Route: 048
     Dates: start: 20030101, end: 20070707
  2. ADALAT [Concomitant]
     Route: 048
  3. BUFFERIN [Concomitant]
     Route: 048
  4. LASIX [Concomitant]
     Route: 065

REACTIONS (1)
  - RHABDOMYOLYSIS [None]
